FAERS Safety Report 19579998 (Version 1)
Quarter: 2021Q3

REPORT INFORMATION
  Report Type: Other
  Country: DE (occurrence: DE)
  Receive Date: 20210720
  Receipt Date: 20210720
  Transmission Date: 20211014
  Serious: No
  Sender: FDA-Public Use
  Company Number: DE-ROCHE-2864393

PATIENT
  Age: 60 Year
  Sex: Female

DRUGS (17)
  1. COMIRNATY [Concomitant]
     Active Substance: TOZINAMERAN
     Route: 030
     Dates: start: 20210401, end: 20210401
  2. INFECTOTRIMET [Concomitant]
     Route: 048
     Dates: start: 20200604, end: 20200608
  3. PARACETAMOL [Concomitant]
     Active Substance: ACETAMINOPHEN
     Route: 041
     Dates: start: 20180611, end: 20180625
  4. INFECTOTRIMET [Concomitant]
     Route: 048
     Dates: start: 20201119, end: 20201123
  5. OCRELIZUMAB. [Suspect]
     Active Substance: OCRELIZUMAB
     Indication: MULTIPLE SCLEROSIS
     Route: 042
     Dates: start: 20180611, end: 20180625
  6. TAVEGIL [Concomitant]
     Active Substance: CLEMASTINE FUMARATE
     Route: 040
     Dates: start: 20181217
  7. FAMPYRA [Concomitant]
     Active Substance: DALFAMPRIDINE
     Route: 048
     Dates: start: 2016
  8. COMIRNATY [Concomitant]
     Active Substance: TOZINAMERAN
     Route: 030
     Dates: start: 20210513, end: 20210513
  9. INTERFERON BETA?1A [Concomitant]
     Active Substance: INTERFERON BETA-1A
     Dates: start: 201403, end: 20141128
  10. FINGOLIMOD. [Concomitant]
     Active Substance: FINGOLIMOD
  11. TAVEGIL [Concomitant]
     Active Substance: CLEMASTINE FUMARATE
     Route: 040
     Dates: start: 20180611, end: 20180625
  12. METHYLPREDNISOLONE. [Concomitant]
     Active Substance: METHYLPREDNISOLONE
     Route: 040
     Dates: start: 20181217
  13. OCRELIZUMAB. [Suspect]
     Active Substance: OCRELIZUMAB
     Indication: RELAPSING MULTIPLE SCLEROSIS
     Route: 042
     Dates: start: 20181217
  14. PARACETAMOL [Concomitant]
     Active Substance: ACETAMINOPHEN
     Route: 040
     Dates: start: 20181217
  15. LEVOFLOXACIN. [Concomitant]
     Active Substance: LEVOFLOXACIN
     Route: 048
     Dates: start: 20210618, end: 20210622
  16. METHYLPREDNISOLONE. [Concomitant]
     Active Substance: METHYLPREDNISOLONE
     Indication: PREMEDICATION
     Route: 041
     Dates: start: 20180611, end: 20180625
  17. DIMETHYL FUMARATE [Concomitant]
     Active Substance: DIMETHYL FUMARATE
     Dates: start: 20141205, end: 20171203

REACTIONS (1)
  - Influenza [Recovered/Resolved]

NARRATIVE: CASE EVENT DATE: 20210513
